FAERS Safety Report 17725337 (Version 14)
Quarter: 2020Q4

REPORT INFORMATION
  Report Type: Report from Study
  Country: MX (occurrence: MX)
  Receive Date: 20200429
  Receipt Date: 20201215
  Transmission Date: 20210113
  Serious: Yes (Death, Life-Threatening, Hospitalization, Disabling, Other)
  Sender: FDA-Public Use
  Company Number: MX-EXELIXIS-XL18420029216

PATIENT
  Age: 81 Year
  Sex: Male
  Weight: 46 kg

DRUGS (8)
  1. UREA. [Concomitant]
     Active Substance: UREA
  2. CLOBETASOL [Concomitant]
     Active Substance: CLOBETASOL
  3. RECOVERON [Concomitant]
  4. XL184 [Suspect]
     Active Substance: CABOZANTINIB
     Indication: RENAL CELL CARCINOMA
     Dosage: 40 MG, QD
     Route: 048
     Dates: start: 20200331, end: 20200423
  5. NIVOLUMAB [Suspect]
     Active Substance: NIVOLUMAB
     Indication: RENAL CELL CARCINOMA
     Dosage: 3 MG/KG, Q3WEEKS, 4 DOSES
     Route: 042
     Dates: start: 20200331, end: 20200602
  6. HIDRASEC [Concomitant]
     Active Substance: RACECADOTRIL
  7. IPILIMUMAB [Suspect]
     Active Substance: IPILIMUMAB
     Indication: RENAL CELL CARCINOMA
     Dosage: 1 MG/KG, Q3WEEKS, 4 DOSES
     Route: 042
     Dates: start: 20200331, end: 20200602
  8. ACETAMINOPHEN. [Concomitant]
     Active Substance: ACETAMINOPHEN

REACTIONS (3)
  - General physical health deterioration [Not Recovered/Not Resolved]
  - Intestinal perforation [Recovered/Resolved]
  - Septic shock [Fatal]

NARRATIVE: CASE EVENT DATE: 20200516
